FAERS Safety Report 4725772-8 (Version None)
Quarter: 2005Q3

REPORT INFORMATION
  Report Type: 
  Country: None (occurrence: None)
  Receive Date: 20050719
  Receipt Date: 20050719
  Transmission Date: 20060218
  Serious: Yes (Other)
  Sender: FDA-Public Use
  Company Number: None

PATIENT
  Sex: Female
  Weight: 33.5662 kg

DRUGS (5)
  1. CLORAZEPATE 3.75MG [Suspect]
     Indication: HEART RATE INCREASED
     Dosage: ORAL ONE DAILY  USING THIS DRUG FOR PAST 10 YEARS, THIS BRAND FOR 3 DAYS
     Route: 048
  2. CLORAZEPATE 3.75MG [Suspect]
     Indication: HEART RATE INCREASED
     Dosage: ORAL ONE DAILY  USING THIS DRUG FOR PAST 10 YEARS, THIS BRAND FOR 3 DAYS
     Route: 048
  3. ATENOLOL [Concomitant]
  4. BUSPAR [Concomitant]
  5. PRILOSEC [Concomitant]

REACTIONS (3)
  - DRUG EFFECT DECREASED [None]
  - HEART RATE INCREASED [None]
  - THERAPEUTIC RESPONSE UNEXPECTED WITH DRUG SUBSTITUTION [None]
